FAERS Safety Report 7650501-8 (Version None)
Quarter: 2011Q3

REPORT INFORMATION
  Report Type: 
  Country: None (occurrence: None)
  Receive Date: 20110802
  Receipt Date: 20110726
  Transmission Date: 20111222
  Serious: Yes (Death, Hospitalization)
  Sender: FDA-Public Use
  Company Number: US-GLAXOSMITHKLINE-A0938369A

PATIENT
  Age: 80 Year
  Sex: Male

DRUGS (3)
  1. ADVAIR DISKUS 100/50 [Suspect]
     Indication: ASTHMA
     Route: 055
     Dates: start: 20110701
  2. ADVAIR DISKUS 100/50 [Suspect]
     Route: 055
  3. CONCURRENT MEDICATIONS [Concomitant]

REACTIONS (1)
  - CARDIAC FAILURE CONGESTIVE [None]
